FAERS Safety Report 12450961 (Version 2)
Quarter: 2016Q2

REPORT INFORMATION
  Report Type: Spontaneous
  Country: JP (occurrence: JP)
  Receive Date: 20160609
  Receipt Date: 20160609
  Transmission Date: 20160815
  Serious: Yes (Hospitalization, Other)
  Sender: FDA-Public Use
  Company Number: JP-CIPLA LTD.-2016JP06346

PATIENT

DRUGS (22)
  1. TIAPRIDE HYDROCHLORIDE [Suspect]
     Active Substance: TIAPRIDE HYDROCHLORIDE
     Indication: RESTLESSNESS
     Dosage: 50 TO 150 MG
     Route: 065
  2. BIPERIDEN [Suspect]
     Active Substance: BIPERIDEN
     Indication: PARKINSON^S DISEASE
     Dosage: 2 MG, UNK
     Route: 065
  3. BIPERIDEN [Suspect]
     Active Substance: BIPERIDEN
     Indication: RESTLESSNESS
     Dosage: 3 MG, UNK
     Route: 065
     Dates: start: 201306
  4. BIPERIDEN [Suspect]
     Active Substance: BIPERIDEN
     Dosage: 1 MG, UNK
     Route: 065
  5. RISPERIDONE. [Suspect]
     Active Substance: RISPERIDONE
     Indication: HALLUCINATIONS, MIXED
     Dosage: UNK
     Route: 065
  6. LEVODOPA [Suspect]
     Active Substance: LEVODOPA
     Indication: PARKINSON^S DISEASE
     Dosage: 100 MG, UNK
     Route: 065
     Dates: start: 201309
  7. LEVODOPA [Suspect]
     Active Substance: LEVODOPA
     Dosage: 600 MG, UNK
     Route: 048
     Dates: start: 201505
  8. ROPINIROLE. [Suspect]
     Active Substance: ROPINIROLE
     Dosage: UNK
     Route: 065
  9. ROPINIROLE. [Suspect]
     Active Substance: ROPINIROLE
     Dosage: 6 UNK, UNK
     Route: 065
  10. QUETIAPINE. [Suspect]
     Active Substance: QUETIAPINE
     Indication: HALLUCINATIONS, MIXED
     Dosage: UNK
     Route: 065
  11. ROPINIROLE. [Suspect]
     Active Substance: ROPINIROLE
     Indication: PARKINSON^S DISEASE
     Dosage: 1 MG, UNK
     Route: 065
     Dates: start: 201411
  12. LEVODOPA [Suspect]
     Active Substance: LEVODOPA
     Dosage: 100 MG, UNK
     Route: 065
  13. OLANZAPINE. [Suspect]
     Active Substance: OLANZAPINE
     Indication: HALLUCINATIONS, MIXED
     Dosage: 5 TO 10 MG
     Route: 065
  14. BIPERIDEN [Suspect]
     Active Substance: BIPERIDEN
     Dosage: 3 MG, UNK
     Route: 048
  15. PEROSPIRONE HYDROCHLORIDE [Suspect]
     Active Substance: PEROSPIRONE HYDROCHLORIDE
     Indication: RESTLESSNESS
     Dosage: 8 TO 16 MG,UNK
     Route: 065
  16. CLONAZEPAM. [Suspect]
     Active Substance: CLONAZEPAM
     Dosage: 1.5 MG, UNK
     Route: 048
  17. BROTIZOLAM [Suspect]
     Active Substance: BROTIZOLAM
     Dosage: 0.25 MG, UNK
     Route: 048
  18. LEVODOPA [Suspect]
     Active Substance: LEVODOPA
     Dosage: 50 MG, UNK
     Route: 065
  19. BIPERIDEN [Suspect]
     Active Substance: BIPERIDEN
     Dosage: 6 MG, UNK
     Route: 065
  20. LEVODOPA [Suspect]
     Active Substance: LEVODOPA
     Dosage: 200 TO 300 MG,UNK
     Route: 065
  21. ROTIGOTINE [Suspect]
     Active Substance: ROTIGOTINE
     Indication: PARKINSON^S DISEASE
     Dosage: UNK
  22. CLONAZEPAM. [Suspect]
     Active Substance: CLONAZEPAM
     Dosage: 0.5 MG, UNK
     Route: 065

REACTIONS (13)
  - Respiratory dyskinesia [Recovered/Resolved]
  - Weight decreased [Unknown]
  - Drug interaction [Unknown]
  - Restlessness [Unknown]
  - Parkinson^s disease [Recovered/Resolved]
  - Tongue biting [Recovered/Resolved]
  - Irritability [Unknown]
  - Oedema peripheral [Unknown]
  - Oromandibular dystonia [Recovered/Resolved]
  - Dyspnoea [Recovered/Resolved]
  - Apnoeic attack [Recovered/Resolved]
  - Sexually inappropriate behaviour [Unknown]
  - Abnormal behaviour [Unknown]

NARRATIVE: CASE EVENT DATE: 201310
